FAERS Safety Report 7102421-5 (Version None)
Quarter: 2010Q4

REPORT INFORMATION
  Report Type: 
  Country: None (occurrence: None)
  Receive Date: 20101115
  Receipt Date: 20101105
  Transmission Date: 20110411
  Serious: No
  Sender: FDA-Public Use
  Company Number: US-BIOGENIDEC-2010BI039534

PATIENT
  Age: 46 Year
  Sex: Female

DRUGS (1)
  1. TYSABRI [Suspect]
     Indication: MULTIPLE SCLEROSIS
     Route: 042
     Dates: start: 20061208

REACTIONS (7)
  - ABASIA [None]
  - BONE DENSITY DECREASED [None]
  - DEHYDRATION [None]
  - FEELING ABNORMAL [None]
  - INITIAL INSOMNIA [None]
  - LOSS OF CONTROL OF LEGS [None]
  - PYREXIA [None]
